FAERS Safety Report 6260421-1 (Version None)
Quarter: 2009Q3

REPORT INFORMATION
  Report Type: 
  Country: None (occurrence: None)
  Receive Date: 20090706
  Receipt Date: 20090619
  Transmission Date: 20100115
  Serious: Yes (Hospitalization)
  Sender: FDA-Public Use
  Company Number: 2009BM000139

PATIENT
  Age: 11 Year
  Sex: Male
  Weight: 22 kg

DRUGS (4)
  1. NAGLAZYME [Suspect]
     Indication: MUCOPOLYSACCHARIDOSIS VI
     Dosage: 20 MG; QW; IVDRP
     Route: 041
     Dates: start: 20071207
  2. LORATADINE [Concomitant]
  3. ALBUTEROL [Concomitant]
  4. IPRATROPIUM BROMIDE [Concomitant]

REACTIONS (4)
  - BRONCHIAL OBSTRUCTION [None]
  - CYANOSIS [None]
  - LEUKOCYTOSIS [None]
  - SUPERINFECTION BACTERIAL [None]
